FAERS Safety Report 6689375-0 (Version None)
Quarter: 2010Q2

REPORT INFORMATION
  Report Type: 
  Country: None (occurrence: None)
  Receive Date: 20100419
  Receipt Date: 20100419
  Transmission Date: 20101027
  Serious: Yes (Hospitalization)
  Sender: FDA-Public Use
  Company Number: None

PATIENT
  Age: 66 Year
  Sex: Female
  Weight: 74.8435 kg

DRUGS (1)
  1. MELOXICAM [Suspect]
     Indication: ARTHRITIS
     Dosage: 1 DAILY PO
     Route: 048
     Dates: start: 20050310, end: 20100409

REACTIONS (9)
  - ALOPECIA [None]
  - ANXIETY [None]
  - DEPRESSION [None]
  - ERUCTATION [None]
  - GASTRIC HAEMORRHAGE [None]
  - GASTRITIS [None]
  - INSOMNIA [None]
  - PAIN [None]
  - WEIGHT INCREASED [None]
